FAERS Safety Report 8192366-4 (Version None)
Quarter: 2012Q1

REPORT INFORMATION
  Report Type: 
  Country: None (occurrence: None)
  Receive Date: 20120308
  Receipt Date: 20120224
  Transmission Date: 20120608
  Serious: Yes (Hospitalization)
  Sender: FDA-Public Use
  Company Number: AR-AMGEN-ARGSP2012011327

PATIENT
  Age: 64 Year
  Sex: Male

DRUGS (7)
  1. ENBREL [Suspect]
     Indication: PSORIATIC ARTHROPATHY
     Dosage: 50 MG, WEEKLY
     Dates: start: 20111004
  2. METHOTREXATE [Concomitant]
     Dosage: UNK
     Route: 048
     Dates: end: 20111101
  3. LOTRIAL                            /00574902/ [Concomitant]
     Dosage: UNK
     Route: 048
  4. GASTROMAX                          /00041902/ [Concomitant]
     Dosage: UNK
     Route: 048
  5. MICARDIS [Concomitant]
     Dosage: UNK
     Route: 048
  6. LEXAPRO [Concomitant]
     Dosage: UNK
  7. ROSUVASTATIN [Concomitant]
     Dosage: UNK

REACTIONS (4)
  - APPLICATION SITE ERYTHEMA [None]
  - APPLICATION SITE PRURITUS [None]
  - CERVICAL SPINAL STENOSIS [None]
  - APPLICATION SITE SWELLING [None]
